FAERS Safety Report 12297864 (Version 1)
Quarter: 2016Q2

REPORT INFORMATION
  Report Type: Spontaneous
  Country: FR (occurrence: FR)
  Receive Date: 20160422
  Receipt Date: 20160422
  Transmission Date: 20160815
  Serious: Yes (Other)
  Sender: FDA-Public Use
  Company Number: FR-PFIZER INC-2016214964

PATIENT
  Age: 68 Year
  Sex: Male

DRUGS (10)
  1. OMEPRAZOLE. [Concomitant]
     Active Substance: OMEPRAZOLE
  2. MABTHERA [Suspect]
     Active Substance: RITUXIMAB
     Dosage: 850 MG, CYCLIC (EVERY OTHER MONTH)
     Route: 041
     Dates: start: 201503
  3. REVLIMID [Suspect]
     Active Substance: LENALIDOMIDE
     Dosage: 20 MG, 1X/DAY (DAY2 TO DAY22 MONTHLY)
     Route: 048
     Dates: start: 201409
  4. SPECIAFOLDINE [Concomitant]
     Active Substance: FOLIC ACID
  5. TAHOR [Suspect]
     Active Substance: ATORVASTATIN CALCIUM
     Dosage: UNK
     Dates: end: 201603
  6. KARDEGIC [Concomitant]
     Active Substance: ASPIRIN LYSINE
     Dosage: UNK
     Dates: start: 201502
  7. PENTACARINAT [Concomitant]
     Active Substance: PENTAMIDINE ISETHIONATE
     Dosage: 1 DF, MONTHLY
     Route: 055
     Dates: start: 201512
  8. MABTHERA [Suspect]
     Active Substance: RITUXIMAB
     Dosage: 850 MG, CYCLIC (MONTHLY)
     Route: 041
     Dates: start: 20140905
  9. ZELITREX [Concomitant]
     Active Substance: VALACYCLOVIR HYDROCHLORIDE
  10. PENTACARINAT [Concomitant]
     Active Substance: PENTAMIDINE ISETHIONATE
     Dosage: 1 DF, MONTHLY
     Route: 055
     Dates: start: 201501, end: 201505

REACTIONS (1)
  - Organising pneumonia [Not Recovered/Not Resolved]

NARRATIVE: CASE EVENT DATE: 2015
